FAERS Safety Report 6818997-9 (Version None)
Quarter: 2010Q3

REPORT INFORMATION
  Report Type: 
  Country: None (occurrence: None)
  Receive Date: 20100701
  Receipt Date: 20100623
  Transmission Date: 20110219
  Serious: Yes (Death, Life-Threatening, Hospitalization)
  Sender: FDA-Public Use
  Company Number: FABR-11686

PATIENT
  Age: 69 Year
  Sex: Female
  Weight: 50 kg

DRUGS (11)
  1. FABRAZYME [Suspect]
     Indication: FABRY'S DISEASE
     Dosage: 50 MG, Q2W, INTRAVENOUS
     Route: 042
     Dates: start: 20030929, end: 20060627
  2. ASPIRIN [Concomitant]
  3. SPIRONOLACTONE [Concomitant]
  4. FUROSEMIDE [Concomitant]
  5. LEVOTHYROXINE SODIUM [Concomitant]
  6. WARFARIN POTASSIUM (WARFARIN POTASSIUM) [Concomitant]
  7. CANDESARTAN CILEXETIL [Concomitant]
  8. ALACEPRIL (ALACEPRIL) [Concomitant]
  9. TORSEMIDE [Concomitant]
  10. URSODIOL [Concomitant]
  11. ALLOPURINOL [Concomitant]

REACTIONS (11)
  - AZOTAEMIA [None]
  - CARDIAC ARREST [None]
  - CARDIAC FAILURE CHRONIC [None]
  - CONDITION AGGRAVATED [None]
  - CYANOSIS [None]
  - HYPOTENSION [None]
  - RENAL FAILURE CHRONIC [None]
  - RESPIRATORY ARREST [None]
  - URINE OUTPUT DECREASED [None]
  - VENTRICULAR TACHYCARDIA [None]
  - WEIGHT INCREASED [None]
